FAERS Safety Report 24194353 (Version 1)
Quarter: 2024Q3

REPORT INFORMATION
  Report Type: Spontaneous
  Country: CN (occurrence: CN)
  Receive Date: 20240809
  Receipt Date: 20240809
  Transmission Date: 20241016
  Serious: Yes (Hospitalization, Other)
  Sender: BAXTER
  Company Number: None

PATIENT
  Age: 11 Year
  Sex: Female
  Weight: 42.5 kg

DRUGS (13)
  1. CYCLOPHOSPHAMIDE [Suspect]
     Active Substance: CYCLOPHOSPHAMIDE
     Indication: Medulloblastoma
     Dosage: 800 MG, ONE TIME IN ONE DAY, DILUTED WITH 500 ML OF NORMAL SALINE, THIRD CYCLE OF CHEMOTHERAPY WITH
     Route: 041
     Dates: start: 20240717, end: 20240718
  2. CYCLOPHOSPHAMIDE [Suspect]
     Active Substance: CYCLOPHOSPHAMIDE
     Indication: Chemotherapy
  3. CYCLOPHOSPHAMIDE [Suspect]
     Active Substance: CYCLOPHOSPHAMIDE
     Indication: Neoplasm malignant
  4. SODIUM CHLORIDE [Suspect]
     Active Substance: SODIUM CHLORIDE
     Indication: Medication dilution
     Dosage: 500 ML, ONE TIME IN ONE DAY, USED TO DILUTE 800 MG OF CYCLOPHOSPHAMIDE, THIRD CYCLE OF CHEMOTHERAPY
     Route: 041
     Dates: start: 20240717, end: 20240718
  5. SODIUM CHLORIDE [Suspect]
     Active Substance: SODIUM CHLORIDE
     Dosage: 500 ML, ONE TIME IN ONE DAY, USED TO DILUTE 40 MG OF CISPLATIN, THIRD CYCLE OF CHEMOTHERAPY WITH 20%
     Route: 041
     Dates: start: 20240717, end: 20240718
  6. SODIUM CHLORIDE [Suspect]
     Active Substance: SODIUM CHLORIDE
     Dosage: 20 ML, ONE TIME IN ONE DAY, USED TO DILUTE 40 MG OF VINDESINE SULFATE
     Route: 041
     Dates: start: 20240717, end: 20240717
  7. SODIUM CHLORIDE [Suspect]
     Active Substance: SODIUM CHLORIDE
     Dosage: 20 ML, ONE TIME IN ONE DAY, USED TO DILUTE 40 MG OF VINDESINE SULFATE, SECOND STAGE, THIRD CYCLE OF
     Route: 041
     Dates: start: 20240724, end: 20240724
  8. VINDESINE SULFATE [Suspect]
     Active Substance: VINDESINE SULFATE
     Indication: Medulloblastoma
     Dosage: 3 MG, ONE TIME IN ONE DAY, DILUTED WITH 20 ML OF NORMAL SALINE, THIRD CYCLE OF CHEMOTHERAPY WITH 20%
     Route: 041
     Dates: start: 20240717, end: 20240717
  9. VINDESINE SULFATE [Suspect]
     Active Substance: VINDESINE SULFATE
     Indication: Chemotherapy
     Dosage: 3 MG, ONE TIME IN ONE DAY, DILUTED WITH 20 ML OF NORMAL SALINE
     Route: 041
     Dates: start: 20240724, end: 20240724
  10. VINDESINE SULFATE [Suspect]
     Active Substance: VINDESINE SULFATE
     Indication: Neoplasm malignant
  11. CISPLATIN [Suspect]
     Active Substance: CISPLATIN
     Indication: Medulloblastoma
     Dosage: 40 MG, ONE TIME IN ONE DAY USED TO DILUTE 500 ML OF SODIUM CHLORIDE (NS)
     Route: 041
     Dates: start: 20240717, end: 20240718
  12. CISPLATIN [Suspect]
     Active Substance: CISPLATIN
     Indication: Chemotherapy
  13. CISPLATIN [Suspect]
     Active Substance: CISPLATIN
     Indication: Neoplasm malignant

REACTIONS (2)
  - Myelosuppression [Recovering/Resolving]
  - White blood cell count decreased [Unknown]

NARRATIVE: CASE EVENT DATE: 20240721
